FAERS Safety Report 9228502 (Version 3)
Quarter: 2013Q3

REPORT INFORMATION
  Report Type: Report from Study
  Country: AU (occurrence: AU)
  Receive Date: 20130412
  Receipt Date: 20130703
  Transmission Date: 20140515
  Serious: Yes (Death, Other)
  Sender: FDA-Public Use
  Company Number: AU-ROCHE-1213420

PATIENT
  Sex: Female
  Weight: 50 kg

DRUGS (11)
  1. ACTEMRA [Suspect]
     Indication: RHEUMATOID ARTHRITIS
     Dosage: TOTAL DOSE 800 MG
     Route: 042
     Dates: start: 20120216, end: 20120502
  2. SPIRIVA [Concomitant]
  3. SYMBICORT [Concomitant]
  4. VENTOLIN [Concomitant]
  5. PANADEINE FORTE [Concomitant]
     Route: 065
  6. NEXIUM [Concomitant]
     Route: 065
  7. LEFLUNOMIDE [Concomitant]
     Route: 065
  8. DIABEX [Concomitant]
  9. ENBREL [Concomitant]
  10. HUMIRA [Concomitant]
  11. METHOTREXATE [Concomitant]

REACTIONS (3)
  - Death [Fatal]
  - Hypersensitivity [Unknown]
  - Rash [Recovered/Resolved]
